FAERS Safety Report 8772541 (Version 2)
Quarter: 2012Q4

REPORT INFORMATION
  Report Type: 
  Country: US (occurrence: US)
  Receive Date: 20120905
  Receipt Date: 20121120
  Transmission Date: 20130627
  Serious: No
  Sender: FDA-Public Use
  Company Number: US-ASTRAZENECA-2012SE57271

PATIENT
  Age: 57 Year
  Sex: Female
  Weight: 78.1 kg

DRUGS (18)
  1. SEROQUEL XR [Suspect]
     Indication: SCHIZOAFFECTIVE DISORDER DEPRESSIVE TYPE
     Route: 048
     Dates: start: 20070723, end: 20120827
  2. SEROQUEL XR [Suspect]
     Indication: MAJOR DEPRESSION
     Route: 048
     Dates: start: 20070723, end: 20120827
  3. SEROQUEL XR [Suspect]
     Indication: GENERALISED ANXIETY DISORDER
     Route: 048
     Dates: start: 20070723, end: 20120827
  4. SEROQUEL XR [Suspect]
     Indication: HALLUCINATION
     Route: 048
     Dates: start: 20070723, end: 20120827
  5. SEROQUEL XR [Suspect]
     Indication: SCHIZOAFFECTIVE DISORDER DEPRESSIVE TYPE
     Route: 048
     Dates: start: 20070723, end: 20120827
  6. SEROQUEL XR [Suspect]
     Indication: MAJOR DEPRESSION
     Route: 048
     Dates: start: 20070723, end: 20120827
  7. SEROQUEL XR [Suspect]
     Indication: GENERALISED ANXIETY DISORDER
     Route: 048
     Dates: start: 20070723, end: 20120827
  8. SEROQUEL XR [Suspect]
     Indication: HALLUCINATION
     Route: 048
     Dates: start: 20070723, end: 20120827
  9. ABILIFY [Concomitant]
     Indication: SCHIZOAFFECTIVE DISORDER
     Route: 065
     Dates: start: 20111003
  10. ABILIFY [Concomitant]
     Indication: HALLUCINATION
     Route: 065
     Dates: start: 20111003
  11. KLONOPIN [Concomitant]
     Indication: ANXIETY
     Dosage: 0.5 MG BID PRN
     Route: 065
     Dates: start: 20070723
  12. CYMBALTA [Concomitant]
     Indication: SCHIZOAFFECTIVE DISORDER DEPRESSIVE TYPE
     Route: 065
     Dates: start: 20101110
  13. LAMICTAL [Concomitant]
     Indication: AFFECTIVE DISORDER
     Route: 065
     Dates: start: 20070723
  14. VIT E [Concomitant]
     Route: 065
  15. WELLBUTRIN XL [Concomitant]
     Indication: SCHIZOAFFECTIVE DISORDER DEPRESSIVE TYPE
     Route: 065
     Dates: start: 20070723
  16. BETA AGONISTS [Concomitant]
     Indication: ASTHMA
  17. GLUCOCORTICOSTEROIDS [Concomitant]
  18. THIAZIDE DIURETICS [Concomitant]

REACTIONS (4)
  - Type 1 diabetes mellitus [Recovering/Resolving]
  - Blood glucose increased [Unknown]
  - Blood triglycerides increased [Unknown]
  - Off label use [Recovered/Resolved]
